FAERS Safety Report 9238387 (Version 1)
Quarter: 2013Q1

REPORT INFORMATION
  Report Type: Spontaneous
  Country: US (occurrence: None)
  Receive Date: 20121106
  Receipt Date: 20121106
  Transmission Date: 20140127
  Serious: No
  Sender: FDA-Public Use
  Company Number: 1000037125

PATIENT
  Age: 77 Year
  Sex: Female

DRUGS (3)
  1. DALIRESP [Suspect]
     Route: 048
     Dates: start: 201207
  2. PREDNISONE (PREDNISONE) (PREDNISONE) [Concomitant]
  3. DILTIAZEM (DILTIAZEM HYDROCHLORIDE) (DILTIAZEM HYDROCHLORIDE) [Concomitant]

REACTIONS (2)
  - Dizziness [None]
  - Vision blurred [None]
